FAERS Safety Report 24907076 (Version 2)
Quarter: 2025Q2

REPORT INFORMATION
  Report Type: Spontaneous
  Country: US (occurrence: US)
  Receive Date: 20250130
  Receipt Date: 20250528
  Transmission Date: 20250717
  Serious: No
  Sender: SANOFI AVENTIS
  Company Number: US-SA-SAC20220912000753

PATIENT
  Age: 29 Year
  Sex: Female

DRUGS (9)
  1. DUPIXENT [Suspect]
     Active Substance: DUPILUMAB
     Indication: Dermatitis atopic
     Dosage: 300 MG, QOW
     Route: 058
     Dates: start: 202403
  2. DUPIXENT [Suspect]
     Active Substance: DUPILUMAB
     Dosage: 300 MG, QOW
     Route: 058
     Dates: start: 20250417
  3. WELLBUTRIN [Concomitant]
     Active Substance: BUPROPION HYDROCHLORIDE
  4. VYVANSE [Concomitant]
     Active Substance: LISDEXAMFETAMINE DIMESYLATE
  5. REXULTI [Concomitant]
     Active Substance: BREXPIPRAZOLE
  6. LEXAPRO [Concomitant]
     Active Substance: ESCITALOPRAM OXALATE
  7. TRAZODONE [Concomitant]
     Active Substance: TRAZODONE HYDROCHLORIDE
  8. SPIRONOLACTONE [Concomitant]
     Active Substance: SPIRONOLACTONE
  9. DOXYCYCLINE [Concomitant]
     Active Substance: DOXYCYCLINE

REACTIONS (1)
  - Dermatitis atopic [Unknown]
